FAERS Safety Report 21887322 (Version 3)
Quarter: 2023Q1

REPORT INFORMATION
  Report Type: Spontaneous
  Country: ES (occurrence: ES)
  Receive Date: 20230119
  Receipt Date: 20230130
  Transmission Date: 20230417
  Serious: Yes (Death, Hospitalization, Other)
  Sender: FDA-Public Use
  Company Number: ES-GILEAD-2023-0613149

PATIENT
  Sex: Female

DRUGS (2)
  1. TRODELVY [Suspect]
     Active Substance: SACITUZUMAB GOVITECAN-HZIY
     Indication: Triple negative breast cancer
     Dosage: UNK
     Route: 065
     Dates: start: 20221209
  2. TRODELVY [Suspect]
     Active Substance: SACITUZUMAB GOVITECAN-HZIY
     Dosage: UNK, DAYS 1 AND 8 (UNKNOWN CYCLE)
     Route: 065
     Dates: start: 202212, end: 202212

REACTIONS (7)
  - Multiple organ dysfunction syndrome [Fatal]
  - Neutropenia [Fatal]
  - Septic shock [Fatal]
  - Mucosal inflammation [Unknown]
  - Dysphagia [Unknown]
  - Respiratory failure [Unknown]
  - Febrile neutropenia [Unknown]

NARRATIVE: CASE EVENT DATE: 20221201
